FAERS Safety Report 5964927-1 (Version None)
Quarter: 2008Q4

REPORT INFORMATION
  Report Type: 
  Country: None (occurrence: None)
  Receive Date: 20081125
  Receipt Date: 20081110
  Transmission Date: 20090506
  Serious: Yes (Hospitalization)
  Sender: FDA-Public Use
  Company Number: JP-BIOGENIDEC-2008BI012342

PATIENT
  Age: 42 Year
  Sex: Female

DRUGS (7)
  1. AVONEX [Suspect]
     Indication: MULTIPLE SCLEROSIS
     Route: 030
     Dates: start: 20070604, end: 20081006
  2. IMURAN [Concomitant]
     Indication: RELAPSING-REMITTING MULTIPLE SCLEROSIS
     Dates: end: 20081023
  3. ADALAT [Concomitant]
     Dates: start: 20070601
  4. OLMETEC [Concomitant]
     Dates: start: 20070601
  5. MAGLAX [Concomitant]
     Dates: start: 20070601, end: 20080701
  6. RIVOTRIL [Concomitant]
     Dates: start: 20070601
  7. TRYPTANOL [Concomitant]
     Dates: start: 20070801

REACTIONS (4)
  - HAEMOGLOBIN DECREASED [None]
  - OPPORTUNISTIC INFECTION [None]
  - RED BLOOD CELL COUNT DECREASED [None]
  - WHITE BLOOD CELL COUNT DECREASED [None]
